FAERS Safety Report 9231944 (Version 1)
Quarter: 2013Q2

REPORT INFORMATION
  Report Type: Spontaneous
  Country: JP (occurrence: JP)
  Receive Date: 20130415
  Receipt Date: 20130415
  Transmission Date: 20140414
  Serious: Yes (Other)
  Sender: FDA-Public Use
  Company Number: JP-ASTRAZENECA-2013SE23481

PATIENT
  Age: 80 Year
  Sex: Male

DRUGS (1)
  1. XYLOCAINE POLYAMP [Suspect]
     Indication: NERVE BLOCK
     Dosage: 2 %, 5 ML /100 MG UNKNOWN FREQUENCY
     Route: 053
     Dates: start: 20130404, end: 20130404

REACTIONS (2)
  - Procedural pain [Unknown]
  - Drug effect incomplete [Unknown]
